FAERS Safety Report 14189828 (Version 1)
Quarter: 2017Q4

REPORT INFORMATION
  Report Type: Spontaneous
  Country: US (occurrence: US)
  Receive Date: 20171115
  Receipt Date: 20171115
  Transmission Date: 20180321
  Serious: No
  Sender: FDA-Public Use
  Company Number: US-PFIZER INC-2017489856

PATIENT
  Age: 45 Year
  Sex: Female
  Weight: 73 kg

DRUGS (6)
  1. XALKORI [Suspect]
     Active Substance: CRIZOTINIB
     Indication: GENE MUTATION
  2. XANAX [Concomitant]
     Active Substance: ALPRAZOLAM
     Indication: ANXIETY
     Dosage: .5 MG, UNK
  3. ZOFRAN [Concomitant]
     Active Substance: ONDANSETRON HYDROCHLORIDE
     Indication: NAUSEA
     Dosage: 8 MG, AS NEEDED
  4. XALKORI [Suspect]
     Active Substance: CRIZOTINIB
     Indication: TRIPLE NEGATIVE BREAST CANCER
     Dosage: 250 MG, 2X/DAY
     Route: 048
     Dates: start: 20171101
  5. AMBIEN [Concomitant]
     Active Substance: ZOLPIDEM TARTRATE
     Indication: INSOMNIA
     Dosage: 5 MG, AS NEEDED
  6. XANAX [Concomitant]
     Active Substance: ALPRAZOLAM
     Indication: PANIC DISORDER

REACTIONS (2)
  - Drug ineffective for unapproved indication [Unknown]
  - Vision blurred [Not Recovered/Not Resolved]

NARRATIVE: CASE EVENT DATE: 201711
